FAERS Safety Report 7488747-4 (Version None)
Quarter: 2011Q2

REPORT INFORMATION
  Report Type: 
  Country: None (occurrence: None)
  Receive Date: 20110518
  Receipt Date: 20110302
  Transmission Date: 20111010
  Serious: Yes (Hospitalization, Other)
  Sender: FDA-Public Use
  Company Number: US-BAYER-2011-020532

PATIENT
  Age: 59 Year
  Sex: Male
  Weight: 65.3 kg

DRUGS (2)
  1. BLINDED SORAFENIB (RAF KINASE INHIBITOR) [Suspect]
     Indication: HEAD AND NECK CANCER
     Dosage: 400 MG, BID
     Route: 048
     Dates: start: 20110227
  2. CETUXIMAB [Suspect]
     Indication: HEAD AND NECK CANCER
     Dosage: 250 MG/M2, WEEKLY
     Route: 042
     Dates: start: 20110221

REACTIONS (5)
  - ABDOMINAL WALL ABSCESS [None]
  - HEAD AND NECK CANCER [None]
  - SYNCOPE [None]
  - CELLULITIS [None]
  - HYPOTENSION [None]
